FAERS Safety Report 8072286-6 (Version None)
Quarter: 2012Q1

REPORT INFORMATION
  Report Type: 
  Country: None (occurrence: None)
  Receive Date: 20120126
  Receipt Date: 20120116
  Transmission Date: 20120608
  Serious: Yes (Other)
  Sender: FDA-Public Use
  Company Number: US-AMGEN-USASP2012003010

PATIENT
  Age: 62 Year
  Sex: Female

DRUGS (2)
  1. ENBREL [Suspect]
     Indication: RHEUMATOID ARTHRITIS
     Dosage: UNK
     Dates: start: 20031201, end: 20110101
  2. ENBREL [Suspect]
     Indication: OSTEOPENIA

REACTIONS (5)
  - SPINAL OPERATION [None]
  - SPINAL FRACTURE [None]
  - MOBILITY DECREASED [None]
  - RIB FRACTURE [None]
  - PAIN [None]
